FAERS Safety Report 24628232 (Version 3)
Quarter: 2025Q2

REPORT INFORMATION
  Report Type: Spontaneous
  Country: US (occurrence: US)
  Receive Date: 20241117
  Receipt Date: 20250624
  Transmission Date: 20250717
  Serious: No
  Sender: NOVARTIS
  Company Number: US-002147023-NVSC2024US220652

PATIENT
  Sex: Male

DRUGS (2)
  1. TAFINLAR [Suspect]
     Active Substance: DABRAFENIB MESYLATE
     Indication: Cerebral disorder
     Dosage: 150 MG, BID
     Route: 048
     Dates: start: 202408
  2. MEKINIST [Suspect]
     Active Substance: TRAMETINIB DIMETHYL SULFOXIDE
     Indication: Cerebral disorder
     Dosage: 2 MG, QD
     Route: 048
     Dates: start: 202408

REACTIONS (4)
  - Dry skin [Unknown]
  - Off label use [Unknown]
  - Constipation [Unknown]
  - Faeces hard [Unknown]
